FAERS Safety Report 6660705-9 (Version None)
Quarter: 2010Q1

REPORT INFORMATION
  Report Type: 
  Country: None (occurrence: None)
  Receive Date: 20100326
  Receipt Date: 20100316
  Transmission Date: 20100710
  Serious: Yes (Death)
  Sender: FDA-Public Use
  Company Number: B0642439A

PATIENT

DRUGS (4)
  1. BUSULPHAN (FORMULATION UNKNOWN) (GENERIC) (BUSULFAN) [Suspect]
     Indication: STEM CELL TRANSPLANT
     Dosage: ORAL
     Route: 048
  2. FLUDARABINE PHOSPHATE [Suspect]
     Indication: STEM CELL TRANSPLANT
     Dosage: 30 MG/M2
  3. ANTITHYMOCYTE IG (FORMULATION UNKNOWN) (ANTITHYMOCYTE IG) [Suspect]
     Indication: STEM CELL TRANSPLANT
  4. FRESENIUS (FORMULATION UNKNOWN) (FRESENIUS) [Suspect]
     Indication: STEM CELL TRANSPLANT

REACTIONS (1)
  - HAEMORRHAGE [None]
